FAERS Safety Report 7665377-2 (Version None)
Quarter: 2011Q3

REPORT INFORMATION
  Report Type: 
  Country: None (occurrence: None)
  Receive Date: 20110806
  Receipt Date: 20110615
  Transmission Date: 20111222
  Serious: Yes (Other)
  Sender: FDA-Public Use
  Company Number: US-ABBOTT-11P-163-0733220-00

PATIENT
  Sex: Male
  Weight: 90.8 kg

DRUGS (7)
  1. UNKNOWN MEDICATIONS [Concomitant]
     Indication: PRODUCT USED FOR UNKNOWN INDICATION
  2. NIASPAN [Suspect]
  3. NIASPAN [Suspect]
     Indication: HIGH DENSITY LIPOPROTEIN DECREASED
     Dates: start: 20110101
  4. COUMADIN [Concomitant]
     Indication: PRODUCT USED FOR UNKNOWN INDICATION
  5. ASPIRIN [Concomitant]
     Dates: start: 20101101
  6. NIASPAN [Suspect]
     Dates: start: 20100801, end: 20101101
  7. ASPIRIN [Concomitant]
     Indication: PRODUCT USED FOR UNKNOWN INDICATION
     Dates: end: 20101101

REACTIONS (6)
  - ATRIAL FIBRILLATION [None]
  - PLATELET COUNT INCREASED [None]
  - FLUSHING [None]
  - LIVER FUNCTION TEST ABNORMAL [None]
  - ILL-DEFINED DISORDER [None]
  - CARDIAC FLUTTER [None]
